FAERS Safety Report 11179492 (Version 1)
Quarter: 2015Q2

REPORT INFORMATION
  Report Type: Spontaneous
  Country: US (occurrence: US)
  Receive Date: 20150611
  Receipt Date: 20150611
  Transmission Date: 20150821
  Serious: No
  Sender: FDA-Public Use
  Company Number: US-009507513-1506USA004905

PATIENT
  Age: 19 Year
  Sex: Female
  Weight: 57.6 kg

DRUGS (3)
  1. NUVARING [Suspect]
     Active Substance: ETHINYL ESTRADIOL\ETONOGESTREL
     Dosage: 3 WEEKS IN 1 WEEK RING FREE BREAK
     Route: 067
     Dates: start: 20150524, end: 20150524
  2. NUVARING [Suspect]
     Active Substance: ETHINYL ESTRADIOL\ETONOGESTREL
     Dosage: 3 WEEKS IN 1 WEEK RING FREE BREAK
     Route: 067
     Dates: start: 20150524
  3. NUVARING [Suspect]
     Active Substance: ETHINYL ESTRADIOL\ETONOGESTREL
     Indication: CONTRACEPTION
     Dosage: 3 WEEKS IN 1 WEEK RING FREE BREAK
     Route: 067
     Dates: start: 201503, end: 20150524

REACTIONS (2)
  - Inappropriate schedule of drug administration [Unknown]
  - Medication error [Unknown]

NARRATIVE: CASE EVENT DATE: 20150524
